FAERS Safety Report 4947741-5 (Version None)
Quarter: 2006Q1

REPORT INFORMATION
  Report Type: 
  Country: None (occurrence: None)
  Receive Date: 20060313
  Receipt Date: 20060302
  Transmission Date: 20060701
  Serious: Yes (Other)
  Sender: FDA-Public Use
  Company Number: 2006-01-0446

PATIENT
  Age: 52 Year
  Sex: Female
  Weight: 73 kg

DRUGS (10)
  1. PEG-INTRON [Suspect]
     Indication: HEPATITIS C
     Dosage: 100 MCG QW SUBCUTANEOUS
     Route: 058
     Dates: start: 20051121, end: 20051226
  2. REBETOL [Suspect]
     Indication: HEPATITIS C
     Dosage: SEE IMAGE
     Route: 048
     Dates: start: 20051121, end: 20051210
  3. REBETOL [Suspect]
     Indication: HEPATITIS C
     Dosage: SEE IMAGE
     Route: 048
     Dates: start: 20051211, end: 20051214
  4. VOLTAREN [Concomitant]
  5. OMEPRAZOLE [Concomitant]
  6. ZOPICLONE [Concomitant]
  7. LOPRESSOR [Concomitant]
  8. CYANOCOBALAMIN [Concomitant]
  9. SELBEX [Concomitant]
  10. HOKUNALIN [Concomitant]

REACTIONS (5)
  - ANAEMIA [None]
  - CONFUSIONAL STATE [None]
  - DELUSION [None]
  - HALLUCINATION [None]
  - LOWER LIMB FRACTURE [None]
